FAERS Safety Report 13715494 (Version 4)
Quarter: 2018Q3

REPORT INFORMATION
  Report Type: Report from Study
  Country: None (occurrence: BR)
  Receive Date: 20170704
  Receipt Date: 20180720
  Transmission Date: 20181010
  Serious: Yes (Hospitalization, Other)
  Sender: FDA-Public Use
  Company Number: BR-ABBVIE-17K-020-2025236-00

PATIENT
  Age: 46 Year
  Sex: Female
  Weight: 62 kg

DRUGS (16)
  1. AZATHIOPRINE. [Suspect]
     Active Substance: AZATHIOPRINE
     Indication: CROHN^S DISEASE
     Route: 065
     Dates: end: 201704
  2. PREDNISONE. [Concomitant]
     Active Substance: PREDNISONE
     Indication: CROHN^S DISEASE
  3. HUMIRA [Suspect]
     Active Substance: ADALIMUMAB
     Dosage: MAINTENANCE DOSE
     Route: 058
     Dates: start: 2014
  4. FRONTAL [Concomitant]
     Active Substance: ALPRAZOLAM
     Indication: DEPRESSION
  5. CHOLECALCIFEROL [Concomitant]
     Active Substance: CHOLECALCIFEROL
     Indication: VITAMIN SUPPLEMENTATION
     Route: 048
     Dates: start: 20170614
  6. FLORATIL [Concomitant]
     Indication: DIARRHOEA
  7. OMEPRAZOLE. [Concomitant]
     Active Substance: OMEPRAZOLE
     Indication: GASTRITIS
     Route: 048
     Dates: start: 2013
  8. LYRICA [Concomitant]
     Active Substance: PREGABALIN
     Indication: PAIN
  9. HUMIRA [Suspect]
     Active Substance: ADALIMUMAB
     Indication: CROHN^S DISEASE
     Route: 058
  10. OSCAL D [Concomitant]
     Active Substance: CALCIUM CARBONATE\CHOLECALCIFEROL
     Indication: PAIN
     Route: 048
     Dates: start: 201704
  11. DIPYRONE [Concomitant]
     Active Substance: DIPYRONE
     Indication: PAIN
  12. HUMIRA [Suspect]
     Active Substance: ADALIMUMAB
     Dosage: WEEK 2, LOADING DOSE
     Route: 058
     Dates: start: 201411, end: 201411
  13. ZOLOFT [Concomitant]
     Active Substance: SERTRALINE HYDROCHLORIDE
     Indication: SLEEP DISORDER THERAPY
  14. ZOLOFT [Concomitant]
     Active Substance: SERTRALINE HYDROCHLORIDE
     Indication: DEPRESSION
  15. HUMIRA [Suspect]
     Active Substance: ADALIMUMAB
     Indication: CROHN^S DISEASE
     Dosage: WEEK 0, LOADING DOSE
     Route: 058
     Dates: start: 20141107, end: 20141107
  16. METICORTEN [Concomitant]
     Active Substance: PREDNISONE
     Indication: CROHN^S DISEASE

REACTIONS (24)
  - Intestinal stenosis [Unknown]
  - Fractured coccyx [Recovering/Resolving]
  - Constipation [Recovering/Resolving]
  - Gastritis erosive [Unknown]
  - Crohn^s disease [Not Recovered/Not Resolved]
  - Weight decreased [Not Recovered/Not Resolved]
  - Renal impairment [Unknown]
  - Functional gastrointestinal disorder [Not Recovered/Not Resolved]
  - Rectal polyp [Unknown]
  - Fall [Unknown]
  - Fractured sacrum [Unknown]
  - Gastrointestinal pain [Recovering/Resolving]
  - Vomiting [Not Recovered/Not Resolved]
  - Pain in extremity [Not Recovered/Not Resolved]
  - Helicobacter infection [Recovered/Resolved]
  - Blood urine present [Unknown]
  - Cataract [Recovering/Resolving]
  - Ulcer [Not Recovered/Not Resolved]
  - Arthralgia [Not Recovered/Not Resolved]
  - Pain [Not Recovered/Not Resolved]
  - Frequent bowel movements [Not Recovered/Not Resolved]
  - Visual impairment [Not Recovered/Not Resolved]
  - Fall [Recovered/Resolved]
  - Abdominal pain [Not Recovered/Not Resolved]

NARRATIVE: CASE EVENT DATE: 2014
